FAERS Safety Report 7129319-0 (Version None)
Quarter: 2010Q4

REPORT INFORMATION
  Report Type: 
  Country: None (occurrence: None)
  Receive Date: 20101130
  Receipt Date: 20101119
  Transmission Date: 20110411
  Serious: Yes (Other)
  Sender: FDA-Public Use
  Company Number: US-PFIZER INC-2010153602

PATIENT
  Sex: Male
  Weight: 99.773 kg

DRUGS (4)
  1. LYRICA [Suspect]
     Indication: NEURALGIA
     Dosage: 100MG
     Route: 048
     Dates: start: 20100901, end: 20100101
  2. LYRICA [Interacting]
     Indication: SCOLIOSIS
  3. LEXAPRO [Interacting]
     Indication: DEPRESSION
     Dosage: 60 MG, UNK
     Route: 048
  4. LEXAPRO [Interacting]
     Indication: PAIN MANAGEMENT

REACTIONS (3)
  - DISTURBANCE IN ATTENTION [None]
  - DRUG INTERACTION [None]
  - PAIN [None]
